FAERS Safety Report 5897211-5 (Version None)
Quarter: 2008Q3

REPORT INFORMATION
  Report Type: 
  Country: None (occurrence: None)
  Receive Date: 20080923
  Receipt Date: 20080908
  Transmission Date: 20090109
  Serious: Yes (Death)
  Sender: FDA-Public Use
  Company Number: KADN20080333

PATIENT
  Age: 49 Year
  Sex: Male

DRUGS (4)
  1. MORPHINE [Suspect]
     Dosage: ORAL
     Route: 048
     Dates: end: 20050101
  2. FENTANYL [Suspect]
     Dosage: TRANSDERMAL
     Route: 062
     Dates: end: 20050101
  3. CODEINE SUL TAB [Suspect]
     Dosage: ORAL
     Route: 048
     Dates: end: 20050101
  4. BUTALBITAL/ASPIRIN/CAFFEINE/CODEINE [Suspect]
     Dosage: ORAL
     Route: 048
     Dates: end: 20050101

REACTIONS (1)
  - DRUG TOXICITY [None]
